FAERS Safety Report 16556759 (Version 1)
Quarter: 2019Q3

REPORT INFORMATION
  Report Type: Spontaneous
  Country: DE (occurrence: DE)
  Receive Date: 20190711
  Receipt Date: 20190711
  Transmission Date: 20191004
  Serious: Yes (Other)
  Sender: FDA-Public Use
  Company Number: DE-AUROBINDO-AUR-APL-2019-038724

PATIENT

DRUGS (2)
  1. MIRENA [Interacting]
     Active Substance: LEVONORGESTREL
     Indication: PRODUCT USED FOR UNKNOWN INDICATION
     Dosage: UNK, 2X 5 YEARS
     Route: 065
     Dates: start: 20041221, end: 20141109
  2. SERTRALINE [Suspect]
     Active Substance: SERTRALINE HYDROCHLORIDE
     Indication: DEPRESSION
     Dosage: UNK
     Route: 065

REACTIONS (7)
  - Mood swings [Unknown]
  - Depression [Recovering/Resolving]
  - Drug interaction [Recovering/Resolving]
  - Suicidal ideation [Unknown]
  - Invasive breast carcinoma [Recovering/Resolving]
  - Hyperhidrosis [Unknown]
  - Sleep disorder [Unknown]

NARRATIVE: CASE EVENT DATE: 20130201
